FAERS Safety Report 6132613-3 (Version None)
Quarter: 2009Q1

REPORT INFORMATION
  Report Type: 
  Country: None (occurrence: None)
  Receive Date: 20090324
  Receipt Date: 20090313
  Transmission Date: 20090719
  Serious: Yes (Other)
  Sender: FDA-Public Use
  Company Number: IPS_01520_2009

PATIENT
  Sex: Male

DRUGS (6)
  1. APO-GO (APO-GO - APOMORPHINE HYDROCHLORIDE) (NOT SPECIFIED) [Suspect]
     Indication: DRUG USE FOR UNKNOWN INDICATION
     Dosage: (5 MG PER HOUR SUBCUTANEOUS)
     Route: 058
     Dates: start: 20081101
  2. STALEVO 100 [Concomitant]
  3. SEROQUEL [Concomitant]
  4. TRIVASTAL /00397201/ [Concomitant]
  5. MADOPAR /00349201/ [Concomitant]
  6. FLOMAX [Concomitant]

REACTIONS (3)
  - ANGINA PECTORIS [None]
  - ELECTROCARDIOGRAM QT PROLONGED [None]
  - INFUSION RELATED REACTION [None]
